FAERS Safety Report 6970132-2 (Version None)
Quarter: 2010Q3

REPORT INFORMATION
  Report Type: 
  Country: None (occurrence: None)
  Receive Date: 20100903
  Receipt Date: 20100824
  Transmission Date: 20110219
  Serious: Yes (Hospitalization)
  Sender: FDA-Public Use
  Company Number: UTC-001370

PATIENT
  Age: 64 Year
  Sex: Female
  Weight: 49.4 kg

DRUGS (6)
  1. REMODULIN [Suspect]
     Indication: PULMONARY ARTERIAL HYPERTENSION
     Dosage: 72 UG/KG (0.05 UG/KG, 1 IN 1 MIN), INTRAVENOUS
     Route: 042
     Dates: start: 20080429
  2. GAS-X (SILICON DIOXIDE W/SIMETICONE) [Concomitant]
  3. LASIX [Concomitant]
  4. REVATIO [Concomitant]
  5. PREVACID [Concomitant]
  6. PRILOSEC (OMEPRAZOLE) [Concomitant]

REACTIONS (1)
  - ABDOMINAL PAIN [None]
